FAERS Safety Report 19326321 (Version 1)
Quarter: 2021Q2

REPORT INFORMATION
  Report Type: Spontaneous
  Country: US (occurrence: US)
  Receive Date: 20210528
  Receipt Date: 20210528
  Transmission Date: 20210717
  Serious: No
  Sender: FDA-Public Use
  Company Number: US-GLAXOSMITHKLINE-US2021105808

PATIENT
  Age: 71 Year
  Sex: Female

DRUGS (1)
  1. MEPRON [Suspect]
     Active Substance: ATOVAQUONE
     Indication: PULMONARY FIBROSIS
     Dosage: 1500 MG, QD, 750 MG/5ML
     Route: 048
     Dates: start: 2018

REACTIONS (3)
  - Product dose omission issue [Unknown]
  - Cough [Not Recovered/Not Resolved]
  - Secretion discharge [Unknown]

NARRATIVE: CASE EVENT DATE: 202104
